FAERS Safety Report 24553041 (Version 1)
Quarter: 2024Q4

REPORT INFORMATION
  Report Type: Spontaneous
  Country: US (occurrence: US)
  Receive Date: 20241027
  Receipt Date: 20241027
  Transmission Date: 20250115
  Serious: No
  Sender: BAUSCH AND LOMB
  Company Number: US-BAUSCHBL-2024BNL036080

PATIENT
  Age: 88 Year
  Sex: Female
  Weight: 41.7 kg

DRUGS (1)
  1. DEXAMETHASONE\NEOMYCIN\POLYMYXIN B [Suspect]
     Active Substance: DEXAMETHASONE\NEOMYCIN\POLYMYXIN B
     Indication: Eye infection
     Route: 047
     Dates: start: 20241010, end: 20241013

REACTIONS (1)
  - Migraine [Recovered/Resolved]

NARRATIVE: CASE EVENT DATE: 20241001
